FAERS Safety Report 7392294-8 (Version None)
Quarter: 2011Q2

REPORT INFORMATION
  Report Type: 
  Country: None (occurrence: None)
  Receive Date: 20110404
  Receipt Date: 20110330
  Transmission Date: 20111010
  Serious: Yes (Other)
  Sender: FDA-Public Use
  Company Number: US-PFIZER INC-2010058332

PATIENT
  Sex: Female

DRUGS (6)
  1. ALPRAZOLAM [Concomitant]
     Indication: PANIC ATTACK
     Dosage: UNK, AS NEEDED
  2. ZOLOFT [Suspect]
     Indication: DEPRESSION
     Dosage: UNK
  3. EFFEXOR XR [Suspect]
     Indication: DEPRESSION
     Dosage: 300 MG, DAILY
     Dates: end: 20100401
  4. ENBREL [Concomitant]
     Indication: PSORIASIS
     Dosage: UNK
  5. PRISTIQ [Suspect]
     Indication: DEPRESSION
     Dosage: 50 MG, DAILY
     Dates: start: 20100401
  6. OMEPRAZOLE [Concomitant]
     Dosage: UNK

REACTIONS (11)
  - HYPOTHYROIDISM [None]
  - DIZZINESS [None]
  - WEIGHT DECREASED [None]
  - PSORIASIS [None]
  - EMOTIONAL DISTRESS [None]
  - WEIGHT INCREASED [None]
  - STRESS [None]
  - PANIC REACTION [None]
  - DEPRESSION [None]
  - FEELING ABNORMAL [None]
  - WITHDRAWAL SYNDROME [None]
